FAERS Safety Report 5333300-1 (Version None)
Quarter: 2007Q2

REPORT INFORMATION
  Report Type: 
  Country: None (occurrence: None)
  Receive Date: 20070524
  Receipt Date: 20070516
  Transmission Date: 20071010
  Serious: Yes (Death, Hospitalization, Other)
  Sender: FDA-Public Use
  Company Number: CA-AMGEN-US190749

PATIENT
  Sex: Female
  Weight: 85 kg

DRUGS (10)
  1. ENBREL [Suspect]
     Indication: RHEUMATOID ARTHRITIS
     Route: 058
     Dates: start: 20041012
  2. METHOTREXATE [Concomitant]
     Route: 030
     Dates: start: 19960101, end: 20060223
  3. FOLATE SODIUM [Concomitant]
     Route: 048
  4. ETIDRONATE DISODIUM [Concomitant]
     Route: 048
     Dates: start: 20030205, end: 20060223
  5. TYLENOL W/ CODEINE NO. 2 [Concomitant]
     Route: 048
  6. PAXIL [Concomitant]
     Route: 048
     Dates: start: 20020501, end: 20060223
  7. NORVASC [Concomitant]
     Route: 048
  8. IBUPROFEN [Concomitant]
     Route: 065
     Dates: start: 19960101, end: 20060223
  9. CALTRATE [Concomitant]
     Route: 065
     Dates: start: 20030205, end: 20060123
  10. HYDROCHLOROTHIAZIDE [Concomitant]
     Route: 048
     Dates: start: 20060206

REACTIONS (9)
  - BLOOD POTASSIUM DECREASED [None]
  - BLOOD PRESSURE INCREASED [None]
  - CONFUSIONAL STATE [None]
  - COUGH [None]
  - DIZZINESS [None]
  - EPISTAXIS [None]
  - HEPATIC FAILURE [None]
  - NEUROENDOCRINE CARCINOMA [None]
  - OEDEMA [None]
